FAERS Safety Report 7596256-7 (Version None)
Quarter: 2011Q3

REPORT INFORMATION
  Report Type: 
  Country: None (occurrence: None)
  Receive Date: 20110707
  Receipt Date: 20110620
  Transmission Date: 20111222
  Serious: No
  Sender: FDA-Public Use
  Company Number: US-B.I. PHARMACEUTICALS,INC./RIDGEFIELD-2011-BP-15938BP

PATIENT
  Age: 77 Year
  Sex: Female

DRUGS (8)
  1. LEXAPRO [Concomitant]
     Indication: ANXIETY
     Dosage: 20 MG
     Dates: start: 20110101
  2. PRADAXA [Suspect]
     Indication: ATRIAL FIBRILLATION
     Dosage: 300 MG
     Route: 048
     Dates: start: 20110610
  3. CARDIZEM [Concomitant]
     Indication: HYPERTENSION
     Dosage: 360 MG
     Dates: start: 20110101
  4. LASIX [Concomitant]
     Indication: HYPERTENSION
     Dosage: 20 MG
     Dates: start: 20110101
  5. K+ POTASSIUM [Concomitant]
     Indication: HYPERTENSION
     Dosage: 10 MEQ
     Dates: start: 20110101
  6. ALTACE [Concomitant]
     Indication: HYPERTENSION
     Dosage: 2.5 MG
     Dates: start: 20110101
  7. REQUIP [Concomitant]
     Indication: DYSPEPSIA
     Dosage: 1 MG
     Dates: start: 20110101
  8. PRILOSEC [Concomitant]
     Indication: DYSPEPSIA
     Dosage: 20 MG
     Dates: start: 20110101

REACTIONS (1)
  - ALOPECIA [None]
